FAERS Safety Report 6477759-5 (Version None)
Quarter: 2009Q4

REPORT INFORMATION
  Report Type: 
  Country: None (occurrence: None)
  Receive Date: 20091207
  Receipt Date: 20091125
  Transmission Date: 20100525
  Serious: Yes (Other)
  Sender: FDA-Public Use
  Company Number: US-PFIZER INC-2009293216

PATIENT
  Sex: Female
  Weight: 65.306 kg

DRUGS (3)
  1. TOVIAZ [Suspect]
     Indication: POLLAKIURIA
     Dosage: 1 TABLET, 1X/DAY
     Route: 048
     Dates: start: 20091026, end: 20091103
  2. TOVIAZ [Suspect]
     Indication: NOCTURIA
  3. LIPITOR [Concomitant]
     Dosage: 20 MG, 1X/DAY

REACTIONS (1)
  - HYPERTENSION [None]
